FAERS Safety Report 17841483 (Version 2)
Quarter: 2020Q3

REPORT INFORMATION
  Report Type: Report from Study
  Country: IT (occurrence: IT)
  Receive Date: 20200529
  Receipt Date: 20200702
  Transmission Date: 20201103
  Serious: Yes (Death)
  Sender: FDA-Public Use
  Company Number: IT-ROCHE-2610462

PATIENT
  Age: 84 Year
  Sex: Male

DRUGS (2)
  1. VEMURAFENIB. [Suspect]
     Active Substance: VEMURAFENIB
     Indication: BRAF GENE MUTATION
     Route: 048
     Dates: start: 20200415
  2. COBIMETINIB. [Suspect]
     Active Substance: COBIMETINIB
     Indication: BRAF GENE MUTATION
     Route: 048
     Dates: start: 20200415

REACTIONS (1)
  - Death [Fatal]

NARRATIVE: CASE EVENT DATE: 20200506
